FAERS Safety Report 9440417 (Version 1)
Quarter: 2013Q3

REPORT INFORMATION
  Report Type: Spontaneous
  Country: CO (occurrence: CO)
  Receive Date: 20130805
  Receipt Date: 20130805
  Transmission Date: 20140515
  Serious: Yes (Other)
  Sender: FDA-Public Use
  Company Number: CO-PFIZER INC-2013226461

PATIENT
  Age: 42 Year
  Sex: Male

DRUGS (1)
  1. LYRICA [Suspect]
     Indication: NECK PAIN
     Dosage: 75 MG, 1X/DAY
     Route: 048
     Dates: start: 201304

REACTIONS (2)
  - Intervertebral disc protrusion [Not Recovered/Not Resolved]
  - Vocal cord disorder [Not Recovered/Not Resolved]
